FAERS Safety Report 5942598-8 (Version None)
Quarter: 2008Q4

REPORT INFORMATION
  Report Type: 
  Country: None (occurrence: None)
  Receive Date: 20081103
  Receipt Date: 20081020
  Transmission Date: 20090506
  Serious: Yes (Hospitalization)
  Sender: FDA-Public Use
  Company Number: A-JP2008-22405

PATIENT
  Age: 32 Year
  Sex: Female
  Weight: 56 kg

DRUGS (15)
  1. TRACLEER [Suspect]
     Indication: PULMONARY ARTERIAL HYPERTENSION
     Dosage: SEE IMAGE
     Route: 048
     Dates: start: 20070906, end: 20070909
  2. TRACLEER [Suspect]
     Indication: PULMONARY ARTERIAL HYPERTENSION
     Dosage: SEE IMAGE
     Route: 048
     Dates: start: 20070910, end: 20070917
  3. TRACLEER [Suspect]
     Indication: PULMONARY ARTERIAL HYPERTENSION
     Dosage: SEE IMAGE
     Route: 048
     Dates: start: 20070918, end: 20070926
  4. TRACLEER [Suspect]
     Indication: PULMONARY ARTERIAL HYPERTENSION
     Dosage: SEE IMAGE
     Route: 048
     Dates: start: 20070927, end: 20071012
  5. TRACLEER [Suspect]
     Indication: PULMONARY ARTERIAL HYPERTENSION
     Dosage: SEE IMAGE
     Route: 048
     Dates: start: 20071013, end: 20071213
  6. TRACLEER [Suspect]
     Indication: PULMONARY ARTERIAL HYPERTENSION
     Dosage: SEE IMAGE
     Route: 048
     Dates: start: 20071214
  7. EPOPROSTENOL SODIUM [Suspect]
  8. AMLODIPINE BESYLATE [Suspect]
  9. MAGNESIUM(MAGNESIUM OXIDE) [Suspect]
  10. FUROSEMIDE [Suspect]
  11. SPIRONOLACTONE [Suspect]
  12. ALLOPURINOL [Suspect]
  13. POTASSIUM CHLORIDE [Suspect]
  14. DOBUTAMINE(DOTUBATMINE) [Suspect]
  15. OXYGEN (OXYGEN) [Concomitant]

REACTIONS (5)
  - ALANINE AMINOTRANSFERASE INCREASED [None]
  - ASPARTATE AMINOTRANSFERASE INCREASED [None]
  - CENTRAL LINE INFECTION [None]
  - ECZEMA [None]
  - PULMONARY HAEMORRHAGE [None]
